FAERS Safety Report 10215609 (Version 1)
Quarter: 2014Q2

REPORT INFORMATION
  Report Type: Report from Study
  Country: US (occurrence: US)
  Receive Date: 20140604
  Receipt Date: 20140604
  Transmission Date: 20141212
  Serious: Yes (Other)
  Sender: FDA-Public Use
  Company Number: US-BRISTOL-MYERS SQUIBB COMPANY-20845293

PATIENT
  Age: 46 Year
  Sex: Male
  Weight: 119.7 kg

DRUGS (1)
  1. IPILIMUMAB [Suspect]
     Indication: MALIGNANT MELANOMA
     Dosage: LAST DOSE ON 31MAR14?TOTAL DOSE IN THIS COURSE:1200MG?TOTAL COURSES:4
     Route: 042
     Dates: start: 20140217

REACTIONS (1)
  - Hypophosphataemia [Recovered/Resolved]
